FAERS Safety Report 11695868 (Version 1)
Quarter: 2015Q4

REPORT INFORMATION
  Report Type: Spontaneous
  Country: US (occurrence: None)
  Receive Date: 20151103
  Receipt Date: 20151103
  Transmission Date: 20160304
  Serious: No
  Sender: FDA-Public Use
  Company Number: None

PATIENT
  Age: 68 Year
  Sex: Female

DRUGS (1)
  1. IBRANCE [Suspect]
     Active Substance: PALBOCICLIB
     Indication: BREAST CANCER
     Dosage: 21DAYS ON 7 DAYS OFF
     Route: 048
     Dates: start: 201510

REACTIONS (3)
  - Hot flush [None]
  - Night sweats [None]
  - Fatigue [None]

NARRATIVE: CASE EVENT DATE: 20151022
